FAERS Safety Report 19039692 (Version 2)
Quarter: 2025Q3

REPORT INFORMATION
  Report Type: Spontaneous
  Country: CA (occurrence: CA)
  Receive Date: 20210322
  Receipt Date: 20250904
  Transmission Date: 20251020
  Serious: Yes (Other)
  Sender: ALEXION PHARMACEUTICALS
  Company Number: 2021A151255

PATIENT
  Sex: Male

DRUGS (9)
  1. SYMBICORT [Suspect]
     Active Substance: BUDESONIDE\FORMOTEROL FUMARATE DIHYDRATE
     Indication: Product used for unknown indication
     Dosage: 2 DF TWO TIMES A DAY
     Route: 065
  2. FENTANYL [Suspect]
     Active Substance: FENTANYL
     Indication: Product used for unknown indication
     Route: 065
  3. MEPOLIZUMAB [Suspect]
     Active Substance: MEPOLIZUMAB
     Indication: Product used for unknown indication
  4. MEPOLIZUMAB [Suspect]
     Active Substance: MEPOLIZUMAB
     Indication: Asthma
  5. MEPOLIZUMAB [Suspect]
     Active Substance: MEPOLIZUMAB
  6. PREDNISONE [Suspect]
     Active Substance: PREDNISONE
     Indication: Asthma
     Dosage: 10 MILLIGRAM, QD
     Route: 065
  7. SINGULAIR [Suspect]
     Active Substance: MONTELUKAST SODIUM
     Indication: Product used for unknown indication
     Dosage: 1 DOSAGE FORM, QD
  8. TIOTROPIUM BROMIDE [Suspect]
     Active Substance: TIOTROPIUM BROMIDE
     Indication: Product used for unknown indication
     Dosage: 2 DOSAGE FORM, QD
     Route: 065
  9. VENTOLIN [Suspect]
     Active Substance: ALBUTEROL SULFATE
     Indication: Product used for unknown indication
     Route: 065

REACTIONS (16)
  - Eczema [Not Recovered/Not Resolved]
  - Middle insomnia [Unknown]
  - Pruritus [Recovering/Resolving]
  - Rash macular [Unknown]
  - Arthralgia [Unknown]
  - Asthma [Recovering/Resolving]
  - Dyspnoea [Unknown]
  - Dyspnoea exertional [Not Recovered/Not Resolved]
  - Fatigue [Unknown]
  - Haematemesis [Unknown]
  - Loss of personal independence in daily activities [Recovering/Resolving]
  - Memory impairment [Unknown]
  - Mental fatigue [Not Recovered/Not Resolved]
  - Wheezing [Unknown]
  - Drug ineffective [Unknown]
  - Skin laceration [Unknown]
